FAERS Safety Report 5239059-0 (Version None)
Quarter: 2007Q1

REPORT INFORMATION
  Report Type: 
  Country: None (occurrence: None)
  Receive Date: 20061208
  Receipt Date: 20050627
  Transmission Date: 20070707
  Serious: Yes (Other)
  Sender: FDA-Public Use
  Company Number: 2005UW09725

PATIENT
  Age: 69 Year
  Sex: Female
  Weight: 54.431 kg

DRUGS (5)
  1. CRESTOR [Suspect]
     Indication: BLOOD CHOLESTEROL INCREASED
     Dosage: 10 MG PO
     Route: 048
  2. NAPROSYN [Concomitant]
  3. INDERAL [Concomitant]
  4. VITAMINS [Concomitant]
  5. FOSAMAX [Concomitant]

REACTIONS (4)
  - ABDOMINAL PAIN UPPER [None]
  - CONSTIPATION [None]
  - HAIR TEXTURE ABNORMAL [None]
  - INSOMNIA [None]
